FAERS Safety Report 5791518-8 (Version None)
Quarter: 2008Q2

REPORT INFORMATION
  Report Type: 
  Country: None (occurrence: None)
  Receive Date: 20080626
  Receipt Date: 20080305
  Transmission Date: 20081010
  Serious: No
  Sender: FDA-Public Use
  Company Number: A0713517A

PATIENT

DRUGS (1)
  1. ALLI [Suspect]
     Indication: DRUG USE FOR UNKNOWN INDICATION
     Route: 048
     Dates: start: 20080220

REACTIONS (4)
  - GASTROINTESTINAL DISORDER [None]
  - HEADACHE [None]
  - INITIAL INSOMNIA [None]
  - SLEEP DISORDER [None]
